FAERS Safety Report 18625913 (Version 1)
Quarter: 2020Q4

REPORT INFORMATION
  Report Type: Other
  Country: CA (occurrence: CA)
  Receive Date: 20201217
  Receipt Date: 20201217
  Transmission Date: 20210114
  Serious: Yes (Hospitalization, Other)
  Sender: FDA-Public Use
  Company Number: CA-CELLTRION INC.-2020CA033610

PATIENT

DRUGS (11)
  1. TYLENOL [Concomitant]
     Active Substance: ACETAMINOPHEN
     Route: 065
  2. RITUXIMAB (UNKNOWN) [Suspect]
     Active Substance: RITUXIMAB
     Indication: RHEUMATOID ARTHRITIS
     Dosage: 1000 MILLIGRAM
     Route: 042
  3. DIPHENHYDRAMINE HCL [Concomitant]
     Active Substance: DIPHENHYDRAMINE HYDROCHLORIDE
     Indication: PREMEDICATION
     Dosage: 50 MILLIGRAM
     Route: 048
  4. ACETAMINOPHEN. [Concomitant]
     Active Substance: ACETAMINOPHEN
     Indication: PREMEDICATION
     Dosage: 1000 MILLIGRAM
     Route: 048
  5. FOLIC ACID. [Concomitant]
     Active Substance: FOLIC ACID
  6. METHYLPREDNISOLONE. [Concomitant]
     Active Substance: METHYLPREDNISOLONE
     Indication: PREMEDICATION
     Dosage: 100 MILLIGRAM
     Route: 042
  7. VIT D [Concomitant]
     Active Substance: VITAMIN D NOS
     Indication: PRODUCT USED FOR UNKNOWN INDICATION
  8. HYDROXYCHLOROQUINE [Concomitant]
     Active Substance: HYDROXYCHLOROQUINE
  9. METHOTREXATE. [Concomitant]
     Active Substance: METHOTREXATE
  10. SENOKOT [Concomitant]
     Active Substance: SENNOSIDES
     Route: 065
  11. TECTA [Concomitant]
     Active Substance: PANTOPRAZOLE MAGNESIUM

REACTIONS (11)
  - Abdominal pain upper [Recovered/Resolved]
  - Localised infection [Recovered/Resolved]
  - Dehydration [Recovered/Resolved]
  - Pyrexia [Recovered/Resolved]
  - Arthritis infective [Recovered/Resolved]
  - Nausea [Recovered/Resolved]
  - Aphthous ulcer [Recovered/Resolved]
  - Diarrhoea [Recovered/Resolved]
  - Constipation [Recovered/Resolved]
  - Decreased appetite [Recovered/Resolved]
  - Obstruction gastric [Recovered/Resolved]
